FAERS Safety Report 5247958-9 (Version None)
Quarter: 2007Q1

REPORT INFORMATION
  Report Type: 
  Country: None (occurrence: None)
  Receive Date: 20070227
  Receipt Date: 20070215
  Transmission Date: 20070707
  Serious: Yes (Death)
  Sender: FDA-Public Use
  Company Number: US-AMGEN-US211365

PATIENT
  Age: 69 Year
  Sex: Male

DRUGS (1)
  1. NEUPOGEN [Suspect]

REACTIONS (1)
  - MYOCARDIAL INFARCTION [None]
